FAERS Safety Report 17942928 (Version 1)
Quarter: 2020Q2

REPORT INFORMATION
  Report Type: Spontaneous
  Country: US (occurrence: US)
  Receive Date: 20200625
  Receipt Date: 20200625
  Transmission Date: 20200714
  Serious: No
  Sender: FDA-Public Use
  Company Number: US-APOTEX-2020AP012010

PATIENT
  Age: 24 Year
  Sex: Female

DRUGS (4)
  1. FLUTICASONE PROPIONATE NASAL SPRAY [Suspect]
     Active Substance: FLUTICASONE PROPIONATE
     Indication: NASAL CONGESTION
     Dosage: 2 DF, QD (ONE SPRAY IN EACH NOSTRIL)
     Route: 045
     Dates: start: 202002
  2. FLUTICASONE PROPIONATE NASAL SPRAY [Suspect]
     Active Substance: FLUTICASONE PROPIONATE
     Indication: OROPHARYNGEAL DISCOMFORT
     Dosage: 2 DF, QD (ONE SPRAY IN EACH NOSTRIL FOR 2 TO 3 DAYS)
     Route: 045
     Dates: start: 202003
  3. FLUTICASONE PROPIONATE NASAL SPRAY [Suspect]
     Active Substance: FLUTICASONE PROPIONATE
     Indication: HYPERSENSITIVITY
     Dosage: 2 DF, QD (ONE SPRAY IN EACH NOSTRIL)
     Route: 045
     Dates: start: 202004
  4. FLUTICASONE PROPIONATE NASAL SPRAY [Suspect]
     Active Substance: FLUTICASONE PROPIONATE
     Dosage: 4 DF, QD (TWO SPRAY IN EACH NOSTRIL)
     Route: 045
     Dates: start: 202004

REACTIONS (3)
  - Dyspnoea [Not Recovered/Not Resolved]
  - Hyposmia [Not Recovered/Not Resolved]
  - Influenza [Recovered/Resolved]

NARRATIVE: CASE EVENT DATE: 202004
